FAERS Safety Report 12220151 (Version 11)
Quarter: 2019Q3

REPORT INFORMATION
  Report Type: Report from Study
  Country: CA (occurrence: CA)
  Receive Date: 20160330
  Receipt Date: 20190724
  Transmission Date: 20191004
  Serious: Yes (Hospitalization, Other)
  Sender: FDA-Public Use
  Company Number: CA-ROCHE-1546279

PATIENT
  Age: 60 Year
  Sex: Male
  Weight: 100 kg

DRUGS (10)
  1. LYRICA [Suspect]
     Active Substance: PREGABALIN
     Indication: PRODUCT USED FOR UNKNOWN INDICATION
     Route: 065
  2. ARTOTEC [Concomitant]
     Active Substance: DICLOFENAC SODIUM\MISOPROSTOL
  3. FLUOXETINE [Concomitant]
     Active Substance: FLUOXETINE HYDROCHLORIDE
  4. ACTEMRA [Suspect]
     Active Substance: TOCILIZUMAB
     Indication: RHEUMATOID ARTHRITIS
     Route: 042
     Dates: start: 20141231
  5. FOLIC ACID. [Concomitant]
     Active Substance: FOLIC ACID
  6. PREDNISON [Concomitant]
     Active Substance: PREDNISONE
  7. TELMISARTAN. [Concomitant]
     Active Substance: TELMISARTAN
  8. ACTEMRA [Suspect]
     Active Substance: TOCILIZUMAB
     Dosage: LAST DOSE PRIOR TO SAE ON 10/SEP/2015
     Route: 042
     Dates: start: 20150129
  9. ROSUVASTATIN. [Concomitant]
     Active Substance: ROSUVASTATIN
  10. METHOTREXATE. [Concomitant]
     Active Substance: METHOTREXATE

REACTIONS (15)
  - Blood pressure systolic decreased [Unknown]
  - Joint injury [Unknown]
  - Therapeutic product effect incomplete [Unknown]
  - Nerve compression [Not Recovered/Not Resolved]
  - Fatigue [Unknown]
  - Tooth infection [Recovered/Resolved]
  - Abdominal pain [Unknown]
  - Arthralgia [Not Recovered/Not Resolved]
  - Weight decreased [Unknown]
  - Drug ineffective [Unknown]
  - Sciatica [Not Recovered/Not Resolved]
  - Nasopharyngitis [Recovered/Resolved]
  - Oxygen saturation decreased [Not Recovered/Not Resolved]
  - Cholelithiasis [Recovering/Resolving]
  - Blood pressure decreased [Recovered/Resolved]

NARRATIVE: CASE EVENT DATE: 20151020
